FAERS Safety Report 25276563 (Version 1)
Quarter: 2025Q2

REPORT INFORMATION
  Report Type: Spontaneous
  Country: TW (occurrence: TW)
  Receive Date: 20250507
  Receipt Date: 20250507
  Transmission Date: 20250716
  Serious: Yes (Other)
  Sender: AMGEN
  Company Number: TW-AMGEN-TWNSP2025086227

PATIENT

DRUGS (1)
  1. BEVACIZUMAB [Suspect]
     Active Substance: BEVACIZUMAB
     Indication: Rectal cancer
     Dosage: 5 MILLIGRAM/KILOGRAM, Q3WK
     Route: 065

REACTIONS (8)
  - Toxicity to various agents [Unknown]
  - Rectal cancer metastatic [Unknown]
  - Rectal cancer recurrent [Unknown]
  - Neutropenia [Unknown]
  - Post procedural complication [Unknown]
  - Dermatitis [Unknown]
  - Proctalgia [Unknown]
  - Diarrhoea [Unknown]
